FAERS Safety Report 10681785 (Version 3)
Quarter: 2016Q1

REPORT INFORMATION
  Report Type: Spontaneous
  Country: NO (occurrence: NO)
  Receive Date: 20141230
  Receipt Date: 20160202
  Transmission Date: 20160525
  Serious: Yes (Death)
  Sender: FDA-Public Use
  Company Number: NO-ROCHE-1515175

PATIENT
  Age: 63 Year
  Sex: Female

DRUGS (2)
  1. METHOTREXATE [Concomitant]
     Active Substance: METHOTREXATE
     Indication: RHEUMATOID ARTHRITIS
     Dosage: METHOTREXATE TEVA
     Route: 048
     Dates: start: 1992
  2. MABTHERA [Suspect]
     Active Substance: RITUXIMAB
     Indication: RHEUMATOID ARTHRITIS
     Dosage: IN TOTAL 15 INFUSIONS OVER APPROXIMATELY SIX YEARS: JUN/2009, MAY/2010, MAR/2012, OCT/2012, MAY/2013
     Route: 041
     Dates: start: 20081119, end: 20140818

REACTIONS (1)
  - Progressive multifocal leukoencephalopathy [Fatal]

NARRATIVE: CASE EVENT DATE: 201409
